FAERS Safety Report 19437980 (Version 1)
Quarter: 2021Q2

REPORT INFORMATION
  Report Type: Spontaneous
  Country: GH (occurrence: GH)
  Receive Date: 20210618
  Receipt Date: 20210618
  Transmission Date: 20210717
  Serious: Yes (Other)
  Sender: FDA-Public Use
  Company Number: NVSC2021GH134767

PATIENT
  Age: 19 Year
  Sex: Male

DRUGS (2)
  1. COARTEM [Suspect]
     Active Substance: ARTEMETHER\LUMEFANTRINE
     Dosage: 80/480 DOSE (BID) (2 DAYS)
     Route: 048
  2. COARTEM [Suspect]
     Active Substance: ARTEMETHER\LUMEFANTRINE
     Indication: PLASMODIUM FALCIPARUM INFECTION
     Dosage: 80/480 DOSE (AFTER 8 HOURS ON DAY 1)
     Route: 048

REACTIONS (1)
  - Oculogyric crisis [Recovered/Resolved]
